FAERS Safety Report 11550055 (Version 3)
Quarter: 2016Q2

REPORT INFORMATION
  Report Type: Report from Study
  Country: US (occurrence: US)
  Receive Date: 20150924
  Receipt Date: 20160428
  Transmission Date: 20160815
  Serious: No
  Sender: FDA-Public Use
  Company Number: PHEH2015US018576

PATIENT
  Age: 39 Year
  Sex: Female
  Weight: 123.6 kg

DRUGS (6)
  1. ADDERALL [Concomitant]
     Active Substance: AMPHETAMINE ASPARTATE\AMPHETAMINE SULFATE\DEXTROAMPHETAMINE SACCHARATE\DEXTROAMPHETAMINE SULFATE
     Indication: FATIGUE
     Dosage: 30 MG, UNK
     Route: 048
     Dates: start: 2015, end: 201601
  2. LORTAL [Concomitant]
     Indication: PAIN
     Dosage: 7.5 MG, BID
     Route: 048
     Dates: start: 2015
  3. LORTAL [Concomitant]
     Dosage: 7.5 MG, PRN
     Route: 048
     Dates: start: 2015
  4. GILENYA [Suspect]
     Active Substance: FINGOLIMOD HYDROCHLORIDE
     Indication: RELAPSING-REMITTING MULTIPLE SCLEROSIS
     Dosage: 0.5 MG, QD
     Route: 048
     Dates: start: 20150826
  5. GILENYA [Suspect]
     Active Substance: FINGOLIMOD HYDROCHLORIDE
     Dosage: 0.5 MG, QD
     Route: 048
     Dates: start: 201511
  6. HYDROCHLOROTHIAZIDE. [Concomitant]
     Active Substance: HYDROCHLOROTHIAZIDE
     Indication: HYPERTENSION
     Dosage: 25 MG, UNK
     Route: 048

REACTIONS (4)
  - Diarrhoea [Recovered/Resolved]
  - Frequent bowel movements [Recovered/Resolved]
  - Frequent bowel movements [Recovered/Resolved]
  - Diarrhoea [Recovered/Resolved]

NARRATIVE: CASE EVENT DATE: 2015
